FAERS Safety Report 24576702 (Version 7)
Quarter: 2025Q1

REPORT INFORMATION
  Report Type: Report from Study
  Country: JP (occurrence: JP)
  Receive Date: 20241104
  Receipt Date: 20250206
  Transmission Date: 20250409
  Serious: Yes (Hospitalization, Other)
  Sender: BRISTOL-MYERS SQUIBB COMPANY
  Company Number: JP-ONO-2024JP022374

PATIENT
  Age: 76 Year
  Sex: Female
  Weight: 59.1 kg

DRUGS (3)
  1. OPDIVO [Suspect]
     Active Substance: NIVOLUMAB
     Indication: Non-small cell lung cancer
     Route: 041
     Dates: start: 20240620, end: 20240717
  2. CARBOPLATIN [Suspect]
     Active Substance: CARBOPLATIN
     Indication: Non-small cell lung cancer
     Dates: start: 20240620, end: 20240717
  3. PEMETREXED DISODIUM [Concomitant]
     Active Substance: PEMETREXED DISODIUM
     Indication: Non-small cell lung cancer
     Dates: start: 20240620, end: 20240717

REACTIONS (5)
  - Immune-mediated uveitis [Recovering/Resolving]
  - Interstitial lung disease [Recovering/Resolving]
  - Immune-mediated adrenal insufficiency [Not Recovered/Not Resolved]
  - Nausea [Recovered/Resolved]
  - Thyroiditis [Not Recovered/Not Resolved]

NARRATIVE: CASE EVENT DATE: 20240623
